FAERS Safety Report 18965224 (Version 1)
Quarter: 2021Q1

REPORT INFORMATION
  Report Type: Spontaneous
  Country: ES (occurrence: ES)
  Receive Date: 20210304
  Receipt Date: 20210304
  Transmission Date: 20210420
  Serious: Yes (Death, Hospitalization)
  Sender: FDA-Public Use
  Company Number: ES-ROCHE-2776942

PATIENT
  Age: 26 Year
  Sex: Male
  Weight: 90 kg

DRUGS (12)
  1. NOLOTIL (METAMIZOLE MAGNESIUM) [Suspect]
     Active Substance: METAMIZOLE MAGNESIUM
     Indication: PRODUCT USED FOR UNKNOWN INDICATION
     Dosage: ADMINISTRACION EN URGENCIAS HOSPITAL?MOST RECENT DOSE PRIOR TO AE 01/FEB/2021
     Route: 048
     Dates: start: 20210201
  2. PARACETAMOL [Suspect]
     Active Substance: ACETAMINOPHEN
     Route: 048
     Dates: start: 20210201
  3. VENTOLIN [Concomitant]
     Active Substance: ALBUTEROL SULFATE
     Dosage: A DEMANDA
     Route: 055
     Dates: start: 20210130
  4. PARACETAMOL [Suspect]
     Active Substance: ACETAMINOPHEN
     Indication: PRODUCT USED FOR UNKNOWN INDICATION
     Dosage: 1?1?1 SI PRECISA
     Route: 048
     Dates: start: 20210130
  5. PREDNISONA [Suspect]
     Active Substance: PREDNISONE
     Indication: PRODUCT USED FOR UNKNOWN INDICATION
     Route: 048
     Dates: start: 20210130
  6. SALBUTAMOL [Concomitant]
     Active Substance: ALBUTEROL
     Dosage: ADMINISTRACION EN URGENCIAS HOSPITAL
     Dates: start: 20210130, end: 20210130
  7. SYMBICORT [Concomitant]
     Active Substance: BUDESONIDE\FORMOTEROL FUMARATE DIHYDRATE
     Route: 055
     Dates: start: 20201103
  8. URBASON [Suspect]
     Active Substance: METHYLPREDNISOLONE
     Indication: PRODUCT USED FOR UNKNOWN INDICATION
     Dosage: ADMINISTRACION EN URGENCIAS HOSPITAL?MOST RECENT DOSE PRIOR TO AE 30/JAN/2021
     Route: 065
     Dates: start: 20210130
  9. TOCILIZUMAB. [Suspect]
     Active Substance: TOCILIZUMAB
     Indication: COVID-19 PNEUMONIA
     Dosage: MOST RECENT DOSE PRIOR TO AE
     Route: 065
     Dates: start: 202011
  10. ENANTYUM [Suspect]
     Active Substance: DEXKETOPROFEN TROMETAMOL
     Indication: PRODUCT USED FOR UNKNOWN INDICATION
     Dosage: ADMINISTRACION EN URGENCIAS HOSPITAL?MOST RECENT DOSE PRIOR TO AE 01/FEB/2021
     Route: 065
     Dates: start: 20210201
  11. ATROVENT [Concomitant]
     Active Substance: IPRATROPIUM BROMIDE
     Dosage: ADMINISTRACION EN URGENCIAS HOSPITAL
     Dates: start: 20210130, end: 20210130
  12. AUGMENTINE [Suspect]
     Active Substance: AMOXICILLIN\CLAVULANATE POTASSIUM
     Indication: PRODUCT USED FOR UNKNOWN INDICATION
     Dosage: AUGMENTINE 875/125 1/8HORAS
     Route: 048
     Dates: start: 20210201

REACTIONS (2)
  - Haemophagocytic lymphohistiocytosis [Fatal]
  - Hepatitis acute [Fatal]

NARRATIVE: CASE EVENT DATE: 20210204
